FAERS Safety Report 17286839 (Version 3)
Quarter: 2020Q1

REPORT INFORMATION
  Report Type: Report from Study
  Country: CA (occurrence: CA)
  Receive Date: 20200119
  Receipt Date: 20200229
  Transmission Date: 20200409
  Serious: Yes (Other)
  Sender: FDA-Public Use
  Company Number: CA-AMGEN-CANCT2020009453

PATIENT
  Age: 41 Year
  Sex: Male

DRUGS (1)
  1. AIMOVIG [Suspect]
     Active Substance: ERENUMAB-AOOE
     Indication: MIGRAINE
     Dosage: UNK
     Route: 065
     Dates: start: 20191213

REACTIONS (4)
  - Alopecia [Unknown]
  - Influenza [Unknown]
  - Haematemesis [Not Recovered/Not Resolved]
  - Malaise [Unknown]
